FAERS Safety Report 14100810 (Version 2)
Quarter: 2017Q4

REPORT INFORMATION
  Report Type: Spontaneous
  Country: AT (occurrence: AT)
  Receive Date: 20171018
  Receipt Date: 20171021
  Transmission Date: 20180321
  Serious: Yes (Life-Threatening, Hospitalization)
  Sender: FDA-Public Use
  Company Number: AT-009507513-1709AUT014657

PATIENT
  Age: 42 Year
  Sex: Male
  Weight: 103 kg

DRUGS (8)
  1. CONCOR [Concomitant]
     Active Substance: BISOPROLOL FUMARATE
     Dosage: 2.5 MG MILLIGRAM(S)
  2. ZEPATIER [Suspect]
     Active Substance: ELBASVIR\GRAZOPREVIR
     Indication: HEPATITIS C
     Dosage: 50/100MG,  QD
     Dates: start: 20170830, end: 20170927
  3. SEROQUEL [Concomitant]
     Active Substance: QUETIAPINE FUMARATE
     Dosage: 800 MG MILLIGRAM(S), IN THE EVENING
  4. DEPAKINE CHRONO [Concomitant]
     Active Substance: VALPROATE SODIUM
  5. PANTIP [Concomitant]
     Dosage: 20 MG MILLIGRAM(S)
  6. TRUXAL (CHLORPROTHIXENE) [Concomitant]
     Active Substance: CHLORPROTHIXENE
     Dosage: 250 MG MILLIGRAM(S), IN THE EVENING
  7. NOVOMIX 30 [Concomitant]
     Active Substance: INSULIN ASPART
  8. HALDOL DECANOATE [Concomitant]
     Active Substance: HALOPERIDOL DECANOATE
     Indication: SCHIZOPHRENIA
     Dosage: 200 MG MILLIGRAM(S), 14 DAYS
     Dates: end: 20170918

REACTIONS (2)
  - Aggression [Recovered/Resolved]
  - Psychotic disorder [Recovered/Resolved]

NARRATIVE: CASE EVENT DATE: 20170926
